FAERS Safety Report 7902188-4 (Version None)
Quarter: 2011Q4

REPORT INFORMATION
  Report Type: 
  Country: None (occurrence: None)
  Receive Date: 20111108
  Receipt Date: 20111027
  Transmission Date: 20120403
  Serious: Yes (Death)
  Sender: FDA-Public Use
  Company Number: US-MYLANLABS-2009S1000687

PATIENT
  Age: 26 Year
  Sex: Female
  Weight: 66.68 kg

DRUGS (16)
  1. ROXICODONE [Concomitant]
  2. OXYCONTIN [Concomitant]
     Dosage: 20 MG TABLETS
  3. PERCOCET [Concomitant]
     Route: 048
  4. TEMAZEPAM [Concomitant]
  5. METOCLOPRAMIDE [Concomitant]
  6. FERREX [Concomitant]
  7. ASPIRIN [Concomitant]
  8. ACETAMINOPHEN [Concomitant]
  9. OXYCODONE HCL AND ACETAMINOPHEN [Concomitant]
     Dosage: 7.5MG/325MG
  10. LANTUS [Concomitant]
     Dosage: 100 UNITS/ML
  11. FENTANYL-100 [Suspect]
     Indication: PAIN
     Dosage: CHANGED Q72HR
     Dates: end: 20070114
  12. ALTACE [Concomitant]
  13. ALPRAZOLAM [Concomitant]
  14. NOVOLOG [Concomitant]
     Dosage: 100 UNITS/ML
  15. LYRICA [Concomitant]
  16. PROTONIX [Concomitant]

REACTIONS (2)
  - TOXICITY TO VARIOUS AGENTS [None]
  - TYPE 1 DIABETES MELLITUS [None]
